FAERS Safety Report 5646085-6 (Version None)
Quarter: 2008Q1

REPORT INFORMATION
  Report Type: 
  Country: None (occurrence: None)
  Receive Date: 20080131
  Receipt Date: 20071212
  Transmission Date: 20080703
  Serious: Yes (Other)
  Sender: FDA-Public Use
  Company Number: 163-21880-07120779

PATIENT
  Age: 73 Year
  Sex: Female

DRUGS (2)
  1. REVLIMID [Suspect]
     Indication: MULTIPLE MYELOMA
     Dosage: 25 MG, 1 IN 1 D, ORAL; 25 MG, DAILY FOR 21 DAYS, ORAL
     Route: 048
     Dates: start: 20070730, end: 20070822
  2. REVLIMID [Suspect]
     Indication: MULTIPLE MYELOMA
     Dosage: 25 MG, 1 IN 1 D, ORAL; 25 MG, DAILY FOR 21 DAYS, ORAL
     Route: 048
     Dates: start: 20071201

REACTIONS (1)
  - THROMBOSIS [None]
